FAERS Safety Report 7270164-3 (Version None)
Quarter: 2011Q1

REPORT INFORMATION
  Report Type: 
  Country: None (occurrence: None)
  Receive Date: 20110202
  Receipt Date: 20110131
  Transmission Date: 20110831
  Serious: Yes (Other)
  Sender: FDA-Public Use
  Company Number: SG-ROXANE LABORATORIES, INC.-2011-RO-00125RO

PATIENT
  Age: 29 Year
  Sex: Female

DRUGS (1)
  1. RISPERIDONE [Suspect]
     Indication: SCHIZOPHRENIA, PARANOID TYPE
     Dosage: 6 MG

REACTIONS (5)
  - DISTURBANCE IN ATTENTION [None]
  - HALLUCINATION, VISUAL [None]
  - HYPERPROLACTINAEMIA [None]
  - MEMORY IMPAIRMENT [None]
  - DRUG INEFFECTIVE [None]
